FAERS Safety Report 7112383-2 (Version None)
Quarter: 2010Q4

REPORT INFORMATION
  Report Type: 
  Country: None (occurrence: None)
  Receive Date: 20101119
  Receipt Date: 20101020
  Transmission Date: 20110411
  Serious: No
  Sender: FDA-Public Use
  Company Number: A0884154B

PATIENT
  Age: 4 Month
  Sex: Female
  Weight: 5 kg

DRUGS (2)
  1. AVODART [Suspect]
     Indication: ACCIDENTAL EXPOSURE
     Dates: start: 20100924, end: 20100924
  2. NO CONCURRENT MEDICATION [Concomitant]

REACTIONS (1)
  - DRUG EXPOSURE VIA BREAST MILK [None]
